FAERS Safety Report 6229666-0 (Version None)
Quarter: 2009Q2

REPORT INFORMATION
  Report Type: 
  Country: None (occurrence: None)
  Receive Date: 20090615
  Receipt Date: 20090611
  Transmission Date: 20091009
  Serious: Yes (Hospitalization)
  Sender: FDA-Public Use
  Company Number: B0578476A

PATIENT
  Age: 51 Year
  Sex: Female

DRUGS (1)
  1. AUGMENTIN '125' [Suspect]
     Route: 048
     Dates: start: 20080701, end: 20080701

REACTIONS (7)
  - ASTHENIA [None]
  - ECCHYMOSIS [None]
  - PRURITUS [None]
  - RASH [None]
  - SKIN INDURATION [None]
  - TYPE IV HYPERSENSITIVITY REACTION [None]
  - URTICARIA [None]
